FAERS Safety Report 24848743 (Version 2)
Quarter: 2025Q1

REPORT INFORMATION
  Report Type: Report from Study
  Country: CN (occurrence: CN)
  Receive Date: 20250116
  Receipt Date: 20250313
  Transmission Date: 20250408
  Serious: No
  Sender: Vantive US Healthcare
  Company Number: CN-VANTIVE-2025VAN000167

PATIENT
  Age: 33 Year
  Sex: Male

DRUGS (4)
  1. SODIUM CHLORIDE\SODIUM CITRATE, UNSPECIFIED FORM [Suspect]
     Active Substance: SODIUM CHLORIDE\SODIUM CITRATE, UNSPECIFIED FORM
     Indication: Glomerulonephritis chronic
     Route: 042
     Dates: start: 20241130, end: 20241206
  2. MAGNESIUM CHLORIDE\POTASSIUM CHLORIDE\SODIUM BICARBONATE\SODIUM CHLORI [Suspect]
     Active Substance: MAGNESIUM CHLORIDE\POTASSIUM CHLORIDE\SODIUM BICARBONATE\SODIUM CHLORIDE\SODIUM PHOSPHATE, DIBASIC
     Indication: Glomerulonephritis chronic
     Route: 042
     Dates: start: 20241130, end: 20241206
  3. UNSPECIFIED INGREDIENT [Suspect]
     Active Substance: UNSPECIFIED INGREDIENT
     Route: 065
  4. SODIUM CITRATE [Concomitant]
     Active Substance: SODIUM CITRATE
     Indication: Anticoagulant therapy
     Route: 065
     Dates: start: 20241130, end: 20241206

REACTIONS (4)
  - Hyponatraemia [Not Recovered/Not Resolved]
  - Hypomagnesaemia [Not Recovered/Not Resolved]
  - Metabolic alkalosis [Recovered/Resolved]
  - Metabolic acidosis [Recovered/Resolved]

NARRATIVE: CASE EVENT DATE: 20241201
